FAERS Safety Report 24150608 (Version 1)
Quarter: 2024Q3

REPORT INFORMATION
  Report Type: Other
  Country: JP (occurrence: JP)
  Receive Date: 20240730
  Receipt Date: 20240730
  Transmission Date: 20241017
  Serious: Yes (Life-Threatening, Other)
  Sender: ALVOGEN
  Company Number: JP-ALVOGEN-2024095141

PATIENT
  Age: 46 Year
  Sex: Male

DRUGS (12)
  1. DOXORUBICIN [Suspect]
     Active Substance: DOXORUBICIN
     Indication: Leiomyosarcoma metastatic
     Dosage: 20 MG/M2 ONCE DAILY ON DAYS 1-3, CYCLE 1, DOSAGE 100 PERCENTAGE
  2. DOXORUBICIN [Suspect]
     Active Substance: DOXORUBICIN
     Indication: Leiomyosarcoma metastatic
     Dosage: 20 MG/M2 ONCE DAILY ON DAYS 1-3, CYCLE 2, DOSAGE 100 PERCENTAGE
  3. DOXORUBICIN [Suspect]
     Active Substance: DOXORUBICIN
     Indication: Leiomyosarcoma metastatic
     Dosage: 20 MG/M2 ONCE DAILY ON DAYS 1-3, CYCLE 3, DOSAGE 100 PERCENTAGE
  4. IFOSFAMIDE [Suspect]
     Active Substance: IFOSFAMIDE
     Indication: Leiomyosarcoma metastatic
     Dosage: 2500 MG/M2 ONCE DAILY ON DAYS 1-3, CYCLE 1, DOSAGE 100 PERCENTAGE
  5. IFOSFAMIDE [Suspect]
     Active Substance: IFOSFAMIDE
     Indication: Leiomyosarcoma metastatic
     Dosage: 2500 MG/M2 ONCE DAILY ON DAYS 1-3, CYCLE 2, DOSAGE 100 PERCENTAGE
  6. IFOSFAMIDE [Suspect]
     Active Substance: IFOSFAMIDE
     Indication: Leiomyosarcoma metastatic
     Dosage: 2500 MG/M2 ONCE DAILY ON DAYS 1-3, CYCLE 3, DOSAGE 100 PERCENTAGE
  7. DACARBAZINE [Suspect]
     Active Substance: DACARBAZINE
     Indication: Leiomyosarcoma metastatic
     Dosage: 300 MG/M2 ONCE DAILY ON DAYS 1-3, CYCLE 1, DOSAGE 100 PERCENTAGE
  8. DACARBAZINE [Suspect]
     Active Substance: DACARBAZINE
     Indication: Leiomyosarcoma metastatic
     Dosage: 300 MG/M2 ONCE DAILY ON DAYS 1-3, CYCLE 2, DOSAGE 100 PERCENTAGE
  9. DACARBAZINE [Suspect]
     Active Substance: DACARBAZINE
     Indication: Leiomyosarcoma metastatic
     Dosage: 300 MG/M2 ONCE DAILY ON DAYS 1-3, CYCLE 3, DOSAGE 100 PERCENTAGE
  10. MESNA [Suspect]
     Active Substance: MESNA
     Indication: Leiomyosarcoma metastatic
     Dosage: 500 MG/M2 THRICE DAILY FOLLOWING IFOSFAMIDE, CYCLE 1, DOSAGE 100 PERCENTAGE
  11. MESNA [Suspect]
     Active Substance: MESNA
     Indication: Leiomyosarcoma metastatic
     Dosage: 500 MG/M2 THRICE DAILY FOLLOWING IFOSFAMIDE, CYCLE 2, DOSAGE 100 PERCENTAGE
  12. MESNA [Suspect]
     Active Substance: MESNA
     Indication: Leiomyosarcoma metastatic
     Dosage: 500 MG/M2 THRICE DAILY FOLLOWING IFOSFAMIDE, CYCLE 3, DOSAGE 100 PERCENTAGE

REACTIONS (3)
  - Febrile neutropenia [Unknown]
  - Neutropenia [Unknown]
  - Anaemia [Unknown]
